FAERS Safety Report 7477384-3 (Version None)
Quarter: 2011Q2

REPORT INFORMATION
  Report Type: 
  Country: None (occurrence: None)
  Receive Date: 20110513
  Receipt Date: 20110504
  Transmission Date: 20111010
  Serious: No
  Sender: FDA-Public Use
  Company Number: US-BIOGENIDEC-2011BI016963

PATIENT
  Age: 36 Year
  Sex: Female

DRUGS (1)
  1. TYSABRI [Suspect]
     Indication: MULTIPLE SCLEROSIS
     Route: 042
     Dates: start: 20110401

REACTIONS (6)
  - BACK PAIN [None]
  - CHEST PAIN [None]
  - CYSTITIS [None]
  - RESPIRATORY TRACT CONGESTION [None]
  - ASTHMA [None]
  - PHARYNGITIS [None]
